FAERS Safety Report 5824347-7 (Version None)
Quarter: 2008Q3

REPORT INFORMATION
  Report Type: 
  Country: None (occurrence: None)
  Receive Date: 20080728
  Receipt Date: 20080206
  Transmission Date: 20090109
  Serious: No
  Sender: FDA-Public Use
  Company Number: US-BAYER-200810621BCC

PATIENT
  Sex: Female

DRUGS (2)
  1. ALEVE [Suspect]
     Indication: ARTHRALGIA
     Dosage: AS USED: 220 MG  UNIT DOSE: 220 MG
     Route: 048
     Dates: start: 20080205, end: 20080205
  2. ALEVE [Suspect]
     Dosage: UNIT DOSE: 220 MG
     Route: 048
     Dates: start: 20080206, end: 20080206

REACTIONS (2)
  - GLOSSODYNIA [None]
  - THROAT IRRITATION [None]
